FAERS Safety Report 14191923 (Version 1)
Quarter: 2017Q4

REPORT INFORMATION
  Report Type: Spontaneous
  Country: FR (occurrence: FR)
  Receive Date: 20171115
  Receipt Date: 20171115
  Transmission Date: 20180321
  Serious: Yes (Hospitalization)
  Sender: FDA-Public Use
  Company Number: FR-MERCK KGAA-2034148

PATIENT
  Age: 66 Year
  Sex: Male

DRUGS (6)
  1. NOVOTHYROX [Suspect]
     Active Substance: LEVOTHYROXINE SODIUM
     Indication: THYROID MASS
     Route: 048
     Dates: start: 201703
  2. ATORVASTATIN [Suspect]
     Active Substance: ATORVASTATIN
     Route: 048
  3. BI-TILDIEM [Suspect]
     Active Substance: DILTIAZEM
     Route: 048
  4. PANTOPRAZOLE [Suspect]
     Active Substance: PANTOPRAZOLE
     Route: 048
  5. AMILORIDE HYDROCHLORIDE. [Suspect]
     Active Substance: AMILORIDE HYDROCHLORIDE
     Route: 048
  6. KARDEGIC [Suspect]
     Active Substance: ASPIRIN DL-LYSINE
     Route: 048

REACTIONS (5)
  - Tendon pain [Not Recovered/Not Resolved]
  - Blood thyroid stimulating hormone normal [Not Recovered/Not Resolved]
  - Restlessness [Not Recovered/Not Resolved]
  - Depression [Not Recovered/Not Resolved]
  - Enthesopathy [Not Recovered/Not Resolved]

NARRATIVE: CASE EVENT DATE: 20170504
